FAERS Safety Report 9044800 (Version 1)
Quarter: 2013Q1

REPORT INFORMATION
  Report Type: Report from Study
  Country: US (occurrence: US)
  Receive Date: 20130130
  Receipt Date: 20130130
  Transmission Date: 20140127
  Serious: No
  Sender: FDA-Public Use
  Company Number: US-ABBOTT-12P-163-0947293-00

PATIENT
  Age: 31 None
  Sex: Male
  Weight: 81.72 kg

DRUGS (6)
  1. HUMIRA 40 MG/0.8 ML PEN [Suspect]
     Route: 058
     Dates: start: 20120524
  2. HUMIRA 40 MG/0.8 ML PEN [Suspect]
     Dosage: LOADING DOSE
     Route: 058
     Dates: start: 201206, end: 201206
  3. HUMIRA 40 MG/0.8 ML PEN [Suspect]
     Route: 058
     Dates: start: 201206, end: 20120614
  4. CELEXA [Concomitant]
     Indication: PRODUCT USED FOR UNKNOWN INDICATION
     Dosage: DAILY
  5. MELANTONIN [Concomitant]
     Indication: PRODUCT USED FOR UNKNOWN INDICATION
  6. HUMIRA 40 MG/0.8 ML PEN [Suspect]
     Indication: PSORIASIS
     Route: 058
     Dates: start: 20120503, end: 20120503

REACTIONS (14)
  - Asthenia [Recovered/Resolved]
  - Dizziness [Recovering/Resolving]
  - Skin burning sensation [Recovering/Resolving]
  - Pyrexia [Recovered/Resolved]
  - Flushing [Recovering/Resolving]
  - Flatulence [Unknown]
  - Decreased appetite [Recovering/Resolving]
  - Fatigue [Recovered/Resolved]
  - Headache [Recovered/Resolved]
  - Fatigue [Recovered/Resolved]
  - Asthenia [Recovered/Resolved]
  - Dizziness [Recovered/Resolved]
  - Skin burning sensation [Recovered/Resolved]
  - Pyrexia [Recovered/Resolved]
